FAERS Safety Report 7065133-2 (Version None)
Quarter: 2010Q4

REPORT INFORMATION
  Report Type: 
  Country: None (occurrence: None)
  Receive Date: 20101027
  Receipt Date: 20101018
  Transmission Date: 20110411
  Serious: Yes (Hospitalization)
  Sender: FDA-Public Use
  Company Number: FR-AMGEN-QUU430387

PATIENT

DRUGS (6)
  1. ARANESP [Suspect]
     Indication: ANAEMIA OF MALIGNANT DISEASE
     Dosage: 30 A?G, Q3WK
     Route: 042
     Dates: end: 20100101
  2. AZATHIOPRINE [Concomitant]
     Dosage: 75 MG, QD
     Route: 048
     Dates: start: 19980101, end: 20080828
  3. CYCLOSPORINE [Concomitant]
     Dosage: 150 MG, QD
     Route: 048
     Dates: start: 19980101, end: 20090401
  4. EPOETIN BETA [Concomitant]
     Dosage: UNK UNK, QWK
     Route: 042
  5. PREDNISONE [Concomitant]
     Dosage: 5 MG, QD
     Route: 048
     Dates: start: 19980101
  6. RAPAMUNE [Concomitant]

REACTIONS (1)
  - RENAL CANCER [None]
